FAERS Safety Report 4969466-2 (Version None)
Quarter: 2006Q1

REPORT INFORMATION
  Report Type: 
  Country: None (occurrence: None)
  Receive Date: 20060330
  Receipt Date: 20060321
  Transmission Date: 20060701
  Serious: Yes (Hospitalization)
  Sender: FDA-Public Use
  Company Number: THYM-10917

PATIENT

DRUGS (1)
  1. THYMOGLOBULIN [Suspect]

REACTIONS (3)
  - PYREXIA [None]
  - RASH GENERALISED [None]
  - THROMBOCYTOPENIA [None]
